FAERS Safety Report 13946593 (Version 9)
Quarter: 2018Q3

REPORT INFORMATION
  Report Type: Report from Study
  Country: CO (occurrence: CO)
  Receive Date: 20170907
  Receipt Date: 20180823
  Transmission Date: 20181010
  Serious: Yes (Other)
  Sender: FDA-Public Use
  Company Number: PHHY2017CO131856

PATIENT
  Age: 63 Year
  Sex: Male
  Weight: 77 kg

DRUGS (11)
  1. BISOPROLOL [Concomitant]
     Active Substance: BISOPROLOL
     Indication: HYPOTENSION
     Dosage: 5 MG, QD
     Route: 065
  2. TRIMETAZIDINE [Concomitant]
     Active Substance: TRIMETAZIDINE
     Indication: PRODUCT USED FOR UNKNOWN INDICATION
     Route: 065
  3. OMEPRAZOLE. [Concomitant]
     Active Substance: OMEPRAZOLE
     Indication: GASTRITIS PROPHYLAXIS
     Route: 065
  4. RIVAROXABAN [Concomitant]
     Active Substance: RIVAROXABAN
     Indication: ANTICOAGULANT THERAPY
     Dosage: 20 MG, 1 EVERY 24 HOURS
     Route: 065
  5. VALSARTAN. [Concomitant]
     Active Substance: VALSARTAN
     Indication: PRODUCT USED FOR UNKNOWN INDICATION
     Route: 065
  6. ENTRESTO [Suspect]
     Active Substance: SACUBITRIL\VALSARTAN
     Indication: CARDIAC FAILURE
     Dosage: 50 MG (24MG OF SACUBITRIL AND 26MG OF VALSARTAN), Q12H
     Route: 048
     Dates: start: 20170613
  7. ATORVASTATIN [Suspect]
     Active Substance: ATORVASTATIN
     Indication: PRODUCT USED FOR UNKNOWN INDICATION
     Dosage: 40 MG, 1 EVERY 24 HOURS
     Route: 065
  8. EPLERENONE. [Concomitant]
     Active Substance: EPLERENONE
     Indication: RENAL APLASIA
     Dosage: 25 MG, 1 IN EVERY 24 HOURS
     Route: 065
  9. LEVOSULPIRIDE [Concomitant]
     Active Substance: LEVOSULPIRIDE
     Indication: BOWEL MOVEMENT IRREGULARITY
     Dosage: 25 MG, BID
     Route: 065
  10. ESOMEPRAZOLE [Suspect]
     Active Substance: ESOMEPRAZOLE
     Indication: PRODUCT USED FOR UNKNOWN INDICATION
     Route: 065
  11. IVABRADINE [Concomitant]
     Active Substance: IVABRADINE
     Indication: CARDIAC FAILURE
     Dosage: 7.5 MG, 1 EVERY 24 HOURS
     Route: 065

REACTIONS (12)
  - Blood creatinine increased [Unknown]
  - Dizziness [Recovered/Resolved]
  - Dysuria [Unknown]
  - Urinary retention [Unknown]
  - Thrombosis [Unknown]
  - Prothrombin time prolonged [Unknown]
  - Prohormone brain natriuretic peptide increased [Unknown]
  - Chest discomfort [Unknown]
  - Hypotension [Unknown]
  - Condition aggravated [Unknown]
  - Blood urea increased [Unknown]
  - Creatinine urine increased [Unknown]

NARRATIVE: CASE EVENT DATE: 20170810
